FAERS Safety Report 7693911-5 (Version None)
Quarter: 2011Q3

REPORT INFORMATION
  Report Type: 
  Country: None (occurrence: None)
  Receive Date: 20110819
  Receipt Date: 20110812
  Transmission Date: 20111222
  Serious: Yes (Other)
  Sender: FDA-Public Use
  Company Number: JP-PFIZER INC-2011186160

PATIENT
  Age: 71 Year
  Sex: Male

DRUGS (2)
  1. FOSFOMYCIN [Concomitant]
     Dosage: UNK
     Dates: start: 20080101
  2. INDERAL [Suspect]
     Indication: HYPERTENSION
     Dosage: UNK
     Route: 048
     Dates: start: 20080101, end: 20080212

REACTIONS (1)
  - RASH PUSTULAR [None]
